FAERS Safety Report 4350323-X (Version None)
Quarter: 2004Q2

REPORT INFORMATION
  Report Type: 
  Country: None (occurrence: None)
  Receive Date: 20040427
  Receipt Date: 20030611
  Transmission Date: 20050107
  Serious: No
  Sender: FDA-Public Use
  Company Number: 000568

PATIENT
  Age: 52 Year
  Sex: Male

DRUGS (5)
  1. ZEVALIN [Suspect]
     Indication: NON-HODGKIN'S LYMPHOMA
     Dosage: SEE IMAGE
     Dates: start: 20020802, end: 20020802
  2. ZEVALIN [Suspect]
     Indication: NON-HODGKIN'S LYMPHOMA
     Dosage: SEE IMAGE
     Dates: start: 20020813, end: 20020813
  3. ZEVALIN [Suspect]
     Indication: NON-HODGKIN'S LYMPHOMA
     Dosage: SEE IMAGE
     Dates: start: 20020813, end: 20020813
  4. .. [Suspect]
  5. .. [Suspect]

REACTIONS (1)
  - DISEASE PROGRESSION [None]
